FAERS Safety Report 5991521-9 (Version None)
Quarter: 2008Q4

REPORT INFORMATION
  Report Type: 
  Country: None (occurrence: None)
  Receive Date: 20081211
  Receipt Date: 20080430
  Transmission Date: 20090506
  Serious: No
  Sender: FDA-Public Use
  Company Number: US-AMGEN-KDL276710

PATIENT
  Sex: Female

DRUGS (12)
  1. ENBREL [Suspect]
     Indication: RHEUMATOID ARTHRITIS
     Route: 058
     Dates: start: 20080327, end: 20080415
  2. METHOTREXATE [Concomitant]
     Route: 058
     Dates: start: 19980101
  3. SULFASALAZINE [Concomitant]
     Dates: start: 19980101
  4. MEVACOR [Concomitant]
  5. HUMALOG [Concomitant]
  6. ZESTRIL [Concomitant]
  7. FOLIC ACID [Concomitant]
  8. CELEBREX [Concomitant]
  9. ASPIRIN [Concomitant]
  10. SYNTHROID [Concomitant]
  11. CALCIUM [Concomitant]
  12. MULTI-VITAMINS [Concomitant]

REACTIONS (2)
  - HERPES ZOSTER [None]
  - POST HERPETIC NEURALGIA [None]
